FAERS Safety Report 5377754-3 (Version None)
Quarter: 2007Q3

REPORT INFORMATION
  Report Type: 
  Country: None (occurrence: None)
  Receive Date: 20070703
  Receipt Date: 20070621
  Transmission Date: 20080115
  Serious: Yes (Other)
  Sender: FDA-Public Use
  Company Number: DE-GILEAD-2007-0011807

PATIENT
  Sex: Male
  Weight: 79.4 kg

DRUGS (4)
  1. TRUVADA [Suspect]
     Indication: HIV INFECTION
     Route: 048
     Dates: start: 20051025
  2. TRUVADA [Suspect]
     Indication: HEPATITIS B
  3. TRUVADA [Suspect]
     Indication: HEPATITIS C
  4. EFAVIRENZ [Suspect]
     Indication: HIV INFECTION
     Route: 048
     Dates: start: 20051025

REACTIONS (2)
  - LIPOHYPERTROPHY [None]
  - PAIN [None]
